FAERS Safety Report 26076270 (Version 1)
Quarter: 2025Q4

REPORT INFORMATION
  Report Type: Spontaneous
  Country: US (occurrence: US)
  Receive Date: 20251121
  Receipt Date: 20251121
  Transmission Date: 20260118
  Serious: No
  Sender: TAIHO ONCOLOGY INC
  Company Number: US-TAIHOP-2025-012349

PATIENT
  Age: 70 Year
  Sex: Female

DRUGS (1)
  1. LYTGOBI [Suspect]
     Active Substance: FUTIBATINIB
     Indication: Product used for unknown indication
     Dosage: DOSE, FREQUENCY, FORM STRENGTH AND CURRENT CYCLE UNKNOWN
     Route: 048

REACTIONS (9)
  - Hyperkeratosis [Unknown]
  - Taste disorder [Unknown]
  - Stomatitis [Unknown]
  - Hyperphosphataemia [Unknown]
  - Lip blister [Unknown]
  - Growth of eyelashes [Unknown]
  - Pain in extremity [Unknown]
  - Nail discolouration [Unknown]
  - Onycholysis [Unknown]
